FAERS Safety Report 5832416-0 (Version None)
Quarter: 2008Q3

REPORT INFORMATION
  Report Type: 
  Country: None (occurrence: None)
  Receive Date: 20080730
  Receipt Date: 20080723
  Transmission Date: 20090109
  Serious: Yes (Death, Other)
  Sender: FDA-Public Use
  Company Number: GXKR2007GB00619

PATIENT
  Age: 66 Year
  Sex: Male

DRUGS (22)
  1. DIAZEPAM [Suspect]
     Dosage: 4 MG, QD, ORAL
     Route: 048
     Dates: start: 20060619
  2. OXYCONTIN [Suspect]
     Dosage: 40 MG, BID, ORAL
     Route: 048
  3. OXYCODONE HCL [Suspect]
     Indication: CANCER PAIN
     Dosage: 10 MG, ORAL
     Route: 048
     Dates: start: 20060619
  4. ZOPICLONE (ZOPICLONE) [Suspect]
     Dosage: 7.5 MG, QD,
     Dates: start: 20060619
  5. CEFACLOR [Concomitant]
  6. CITALOPRAM HYDROBROMIDE [Concomitant]
  7. DEXAMETHASONE TAB [Concomitant]
  8. DOCUSATE (DOCUSATE) [Concomitant]
  9. DOXYCYCLINE [Concomitant]
  10. FUROSEMIDE [Concomitant]
  11. HALOPERIDOL [Concomitant]
  12. IPRATROPIUM BROMIDE [Concomitant]
  13. LORAZEPAM [Concomitant]
  14. MIDAZOLAM HCL [Concomitant]
  15. NICOTINE (NICOTINE) UNKNOWN, 10 MG [Concomitant]
  16. NYSTATIN [Concomitant]
  17. OMEPRAZOLE [Concomitant]
  18. OXYGEN (OXYGEN) UNKNOWN [Concomitant]
  19. ACETAMINOPHEN [Concomitant]
  20. SALAZOPYRIN (SULFASALAZINE) UNKNOWN [Concomitant]
  21. SALBUTAMOL (SALBUTAMOL) [Concomitant]
  22. WARFARIN SODIUM [Concomitant]

REACTIONS (5)
  - CONFUSIONAL STATE [None]
  - DISEASE PROGRESSION [None]
  - HALLUCINATION [None]
  - INSOMNIA [None]
  - LOWER RESPIRATORY TRACT INFECTION [None]
